FAERS Safety Report 5738732-5 (Version None)
Quarter: 2008Q2

REPORT INFORMATION
  Report Type: 
  Country: None (occurrence: None)
  Receive Date: 20080513
  Receipt Date: 20080429
  Transmission Date: 20081010
  Serious: Yes (Hospitalization)
  Sender: FDA-Public Use
  Company Number: 2008AL002697

PATIENT
  Age: 87 Year
  Sex: Male

DRUGS (6)
  1. DIGOXIN [Suspect]
     Indication: MYOCARDIAL INFARCTION
     Dosage: 0.25 MG; QD; PO
     Route: 048
  2. DILTIAZEM [Concomitant]
  3. LISINOPRIL [Concomitant]
  4. SUCRALFATE [Concomitant]
  5. PROTONIX [Concomitant]
  6. LASIX [Concomitant]

REACTIONS (2)
  - CARDIAC PACEMAKER INSERTION [None]
  - CHEST PAIN [None]
